FAERS Safety Report 16420927 (Version 1)
Quarter: 2019Q2

REPORT INFORMATION
  Report Type: Spontaneous
  Country: FR (occurrence: FR)
  Receive Date: 20190612
  Receipt Date: 20190612
  Transmission Date: 20190711
  Serious: Yes (Hospitalization)
  Sender: FDA-Public Use
  Company Number: FR-FERRINGPH-2019FE02424

PATIENT

DRUGS (3)
  1. FIRMAGON [Suspect]
     Active Substance: DEGARELIX ACETATE
     Indication: PRODUCT USED FOR UNKNOWN INDICATION
     Route: 065
  2. ZYTIGA [Concomitant]
     Active Substance: ABIRATERONE ACETATE
  3. SOLUPRED                           /00016201/ [Concomitant]
     Active Substance: PREDNISOLONE

REACTIONS (2)
  - Lymphadenopathy [Not Recovered/Not Resolved]
  - Prostate cancer [Not Recovered/Not Resolved]
